FAERS Safety Report 17128267 (Version 2)
Quarter: 2019Q4

REPORT INFORMATION
  Report Type: Spontaneous
  Country: JP (occurrence: JP)
  Receive Date: 20191209
  Receipt Date: 20191210
  Transmission Date: 20200122
  Serious: Yes (Other)
  Sender: FDA-Public Use
  Company Number: JP-ROCHE-2490546

PATIENT
  Age: 66 Year
  Sex: Male

DRUGS (5)
  1. CISPLATIN. [Concomitant]
     Active Substance: CISPLATIN
     Indication: GASTRIC CANCER
     Dosage: DOSE INTERVAL UNCERTAINTY
     Route: 041
  2. XELODA [Suspect]
     Active Substance: CAPECITABINE
     Indication: GASTRIC CANCER
     Dosage: DOSE INTERVAL UNCERTAINTY
     Route: 048
  3. HERCEPTIN [Suspect]
     Active Substance: TRASTUZUMAB
     Indication: GASTRIC CANCER
     Dosage: DOSE INTERVAL UNCERTAINTY
     Route: 041
  4. XELODA [Suspect]
     Active Substance: CAPECITABINE
     Dosage: DOSE INTERVAL UNCERTAINTY
     Route: 048
  5. CISPLATIN. [Concomitant]
     Active Substance: CISPLATIN
     Dosage: DOSE INTERVAL UNCERTAINTY
     Route: 041

REACTIONS (2)
  - Neutropenia [Unknown]
  - Glomerular filtration rate decreased [Unknown]
